FAERS Safety Report 17208230 (Version 1)
Quarter: 2019Q4

REPORT INFORMATION
  Report Type: Spontaneous
  Country: DE (occurrence: DE)
  Receive Date: 20191227
  Receipt Date: 20191227
  Transmission Date: 20200122
  Serious: Yes (Hospitalization)
  Sender: FDA-Public Use
  Company Number: DE-JNJFOC-20191233226

PATIENT
  Age: 98 Year
  Sex: Female

DRUGS (13)
  1. PANTOZOL [Concomitant]
     Active Substance: PANTOPRAZOLE SODIUM
     Dosage: 40 MG, QD
  2. POTASSIUM [Concomitant]
     Active Substance: POTASSIUM
     Dosage: 1 DF, QOD
  3. ERYFER (FERROUS SULFATE) [Suspect]
     Active Substance: FERROUS SULFATE
     Dosage: 100 MG, QD
  4. MELPERON [Suspect]
     Active Substance: MELPERONE
     Dosage: 5 ML, PRN
  5. ALLOPURINOL. [Concomitant]
     Active Substance: ALLOPURINOL
     Dosage: 100 MG, QD
  6. MIRTAZAPIN [Concomitant]
     Active Substance: MIRTAZAPINE
     Dosage: 15 MG, 0-0-1-0
  7. RIVAROXABAN [Suspect]
     Active Substance: RIVAROXABAN
     Indication: PRODUCT USED FOR UNKNOWN INDICATION
     Dosage: 10 MG, QD
     Route: 048
  8. TORASEMID [Suspect]
     Active Substance: TORSEMIDE
     Dosage: 10 MG, QD
  9. ACC [Concomitant]
     Active Substance: ACETYLCYSTEINE
     Dosage: 600 MG, QD
  10. SALBUTAMOL AL [Concomitant]
     Dosage: PRN
  11. XIPAMID [Suspect]
     Active Substance: XIPAMIDE
     Dosage: 10 MG, QD
  12. PREGABALIN. [Suspect]
     Active Substance: PREGABALIN
     Dosage: 25 MG, QD
  13. METOPROLOL. [Concomitant]
     Active Substance: METOPROLOL
     Dosage: 71.25 MG, QD

REACTIONS (4)
  - Flatulence [Unknown]
  - Abdominal distension [Unknown]
  - Eructation [Unknown]
  - Constipation [Unknown]
